FAERS Safety Report 8348410-4 (Version None)
Quarter: 2012Q2

REPORT INFORMATION
  Report Type: 
  Country: None (occurrence: None)
  Receive Date: 20120509
  Receipt Date: 20120508
  Transmission Date: 20120825
  Serious: Yes (Other)
  Sender: FDA-Public Use
  Company Number: CHPA2012US009991

PATIENT
  Age: 58 Year
  Sex: Female

DRUGS (3)
  1. ACETYLSALICYLIC ACID SRT [Concomitant]
     Dosage: 325MG A DAY
     Dates: start: 20060101
  2. PREVACID 24 HR [Suspect]
     Indication: GASTROOESOPHAGEAL REFLUX DISEASE
     Dosage: 60 MG, DAILY
     Route: 048
     Dates: start: 20090101
  3. ANTICOAGULANTS [Concomitant]

REACTIONS (6)
  - CAROTID ARTERY DISEASE [None]
  - OVERDOSE [None]
  - DYSPEPSIA [None]
  - ABDOMINAL PAIN UPPER [None]
  - INCORRECT DRUG ADMINISTRATION DURATION [None]
  - OFF LABEL USE [None]
